FAERS Safety Report 15606857 (Version 3)
Quarter: 2018Q4

REPORT INFORMATION
  Report Type: Spontaneous
  Country: US (occurrence: US)
  Receive Date: 20181112
  Receipt Date: 20181205
  Transmission Date: 20190205
  Serious: No
  Sender: FDA-Public Use
  Company Number: US-GLAXOSMITHKLINE-US2018GSK197633

PATIENT
  Sex: Female

DRUGS (1)
  1. BENLYSTA [Suspect]
     Active Substance: BELIMUMAB
     Indication: SYSTEMIC LUPUS ERYTHEMATOSUS

REACTIONS (6)
  - Product dose omission [Unknown]
  - Nervousness [Unknown]
  - Injection site haemorrhage [Unknown]
  - Product complaint [Unknown]
  - Injection site pain [Unknown]
  - Device deployment issue [Unknown]
